FAERS Safety Report 16612307 (Version 1)
Quarter: 2019Q3

REPORT INFORMATION
  Report Type: Spontaneous
  Country: US (occurrence: US)
  Receive Date: 20190722
  Receipt Date: 20190722
  Transmission Date: 20191004
  Serious: No
  Sender: FDA-Public Use
  Company Number: US-FOUNDATIONCONSUMERHC-2019-US-009408

PATIENT
  Age: 16 Year
  Sex: Female

DRUGS (1)
  1. PLAN B ONE-STEP [Suspect]
     Active Substance: LEVONORGESTREL
     Indication: POST COITAL CONTRACEPTION
     Dosage: 1.5 MG X 1 DOSE
     Dates: start: 20190428, end: 20190428

REACTIONS (10)
  - Dysmenorrhoea [Unknown]
  - Vulvovaginal dryness [Unknown]
  - Dizziness [Unknown]
  - Vaginal haemorrhage [Unknown]
  - Intentional product misuse [Recovered/Resolved]
  - Vaginal discharge [Unknown]
  - Menstruation delayed [Unknown]
  - Flatulence [Unknown]
  - Nausea [Unknown]
  - Vaginal haemorrhage [Unknown]

NARRATIVE: CASE EVENT DATE: 20190428
